FAERS Safety Report 26212352 (Version 1)
Quarter: 2025Q4

REPORT INFORMATION
  Report Type: Spontaneous
  Country: CN (occurrence: CN)
  Receive Date: 20251230
  Receipt Date: 20251230
  Transmission Date: 20260117
  Serious: Yes (Other)
  Sender: BAXTER
  Company Number: None

PATIENT
  Age: 51 Year
  Sex: Female
  Weight: 46 kg

DRUGS (4)
  1. CYCLOPHOSPHAMIDE [Suspect]
     Active Substance: CYCLOPHOSPHAMIDE
     Indication: Squamous cell breast carcinoma
     Dosage: 0.9 G, QD + 0.9% NS150 ML IVGTT QD
     Route: 041
     Dates: start: 20251208, end: 20251208
  2. SODIUM CHLORIDE [Suspect]
     Active Substance: SODIUM CHLORIDE
     Dosage: 150 ML, QD + CYCLOPHOSPHAMIDE FOR INJECTION 0.9 G, IVGTT QD
     Route: 041
     Dates: start: 20251208, end: 20251208
  3. DEXTROSE\SODIUM CHLORIDE [Suspect]
     Active Substance: DEXTROSE\SODIUM CHLORIDE
     Dosage: 100 MG, QD + PIRARUBICIN FOR INJECTION 60 MG, IVGTT QD
     Route: 041
     Dates: start: 20251208, end: 20251208
  4. PIRARUBICIN HYDROCHLORIDE [Suspect]
     Active Substance: PIRARUBICIN HYDROCHLORIDE
     Indication: Squamous cell breast carcinoma
     Dosage: 60 MG, QD + 5% GNS100 MG IVGTT QD
     Route: 041
     Dates: start: 20251208, end: 20251208

REACTIONS (2)
  - Myelosuppression [Recovering/Resolving]
  - Neutrophil count decreased [Recovered/Resolved]

NARRATIVE: CASE EVENT DATE: 20251212
